FAERS Safety Report 6240729-6 (Version None)
Quarter: 2009Q2

REPORT INFORMATION
  Report Type: 
  Country: None (occurrence: None)
  Receive Date: 20090623
  Receipt Date: 20090226
  Transmission Date: 20091009
  Serious: No
  Sender: FDA-Public Use
  Company Number: US-ASTRAZENECA-2009UW05452

PATIENT
  Age: 8 Year
  Sex: Male

DRUGS (2)
  1. PULMICORT FLEXHALER [Suspect]
     Indication: COUGH
     Route: 055
     Dates: start: 20090201, end: 20090201
  2. ALBUTEROL [Concomitant]

REACTIONS (2)
  - COUGH [None]
  - RESPIRATORY TRACT CONGESTION [None]
